FAERS Safety Report 7759654-4 (Version None)
Quarter: 2011Q3

REPORT INFORMATION
  Report Type: 
  Country: None (occurrence: None)
  Receive Date: 20110919
  Receipt Date: 20110909
  Transmission Date: 20111222
  Serious: Yes (Death, Hospitalization)
  Sender: FDA-Public Use
  Company Number: JP-CELGENEUS-087-21880-11091118

PATIENT
  Sex: Male

DRUGS (17)
  1. OXYCONTIN [Concomitant]
     Dosage: 2 TABLET
     Route: 048
     Dates: start: 20110516, end: 20110518
  2. VALTREX [Concomitant]
     Indication: STOMATITIS
     Route: 065
     Dates: start: 20110501
  3. CONIEL [Concomitant]
     Dosage: 1 TABLET
     Route: 048
     Dates: start: 20110614, end: 20110616
  4. MAGMITT [Concomitant]
     Dosage: 3 TABLET
     Route: 048
     Dates: start: 20110511, end: 20110606
  5. OXYCONTIN [Concomitant]
     Dosage: 3 TABLET
     Route: 048
     Dates: start: 20110520, end: 20110606
  6. REVLIMID [Suspect]
     Indication: MULTIPLE MYELOMA
     Dosage: 5 MILLIGRAM
     Route: 048
     Dates: start: 20110511, end: 20110517
  7. LOXONIN [Concomitant]
     Dosage: 3 TABLET
     Route: 048
     Dates: start: 20110511, end: 20110606
  8. OXYCONTIN [Concomitant]
     Dosage: 1 TABLET
     Route: 048
     Dates: start: 20110511, end: 20110511
  9. OXYCONTIN [Concomitant]
     Dosage: 1 TABLET
     Route: 048
     Dates: start: 20110519, end: 20110519
  10. GASTROM [Concomitant]
     Dosage: 2 SACHETS
     Route: 048
     Dates: start: 20110511, end: 20110606
  11. CONIEL [Concomitant]
     Dosage: 2 TABLET
     Route: 048
     Dates: start: 20110511, end: 20110606
  12. RENAGEL [Concomitant]
     Dosage: 2 TABLET
     Route: 048
     Dates: start: 20110511, end: 20110606
  13. DEXAMETHASONE [Suspect]
     Indication: MULTIPLE MYELOMA
     Dosage: 40 MILLIGRAM
     Route: 048
     Dates: start: 20110502, end: 20110514
  14. FLIVAS [Concomitant]
     Dosage: 2 TABLET
     Route: 048
     Dates: start: 20110511, end: 20110606
  15. LANSOPRAZOLE [Concomitant]
     Dosage: 30 MILLIGRAM
     Route: 048
     Dates: start: 20110511, end: 20110606
  16. OXYCONTIN [Concomitant]
     Dosage: 3 TABLET
     Route: 048
     Dates: start: 20110512, end: 20110515
  17. OXYCONTIN [Concomitant]
     Dosage: 1 TABLET
     Route: 048
     Dates: start: 20110610, end: 20110616

REACTIONS (3)
  - PNEUMONIA [None]
  - SEPSIS [None]
  - STOMATITIS [None]
